FAERS Safety Report 9642078 (Version 15)
Quarter: 2015Q3

REPORT INFORMATION
  Report Type: Report from Study
  Country: CA (occurrence: CA)
  Receive Date: 20131023
  Receipt Date: 20150918
  Transmission Date: 20151125
  Serious: Yes (Other)
  Sender: FDA-Public Use
  Company Number: CA-ROCHE-1292324

PATIENT
  Age: 56 Year
  Sex: Male
  Weight: 126 kg

DRUGS (20)
  1. ACTEMRA [Suspect]
     Active Substance: TOCILIZUMAB
     Indication: RHEUMATOID ARTHRITIS
     Route: 042
     Dates: start: 20130725
  2. ACTEMRA [Suspect]
     Active Substance: TOCILIZUMAB
     Route: 042
     Dates: start: 20141110
  3. ACTEMRA [Suspect]
     Active Substance: TOCILIZUMAB
     Route: 042
     Dates: start: 20140915
  4. ACTEMRA [Suspect]
     Active Substance: TOCILIZUMAB
     Route: 042
     Dates: start: 20150205
  5. NEXIUM [Concomitant]
     Active Substance: ESOMEPRAZOLE MAGNESIUM
  6. ACCURETIC [Concomitant]
     Active Substance: HYDROCHLOROTHIAZIDE\QUINAPRIL HYDROCHLORIDE
  7. NORVASC [Concomitant]
     Active Substance: AMLODIPINE BESYLATE
  8. KEPPRA [Concomitant]
     Active Substance: LEVETIRACETAM
  9. CRESTOR [Concomitant]
     Active Substance: ROSUVASTATIN CALCIUM
  10. HYDROXYCHLOROQUINE [Concomitant]
     Active Substance: HYDROXYCHLOROQUINE
  11. FOLIC ACID. [Concomitant]
     Active Substance: FOLIC ACID
  12. ACTEMRA [Suspect]
     Active Substance: TOCILIZUMAB
     Route: 042
     Dates: start: 20141209
  13. ACTEMRA [Suspect]
     Active Substance: TOCILIZUMAB
     Route: 042
     Dates: start: 20150106
  14. ACTEMRA [Suspect]
     Active Substance: TOCILIZUMAB
     Route: 042
     Dates: start: 20150428
  15. ACTEMRA [Suspect]
     Active Substance: TOCILIZUMAB
     Route: 042
     Dates: start: 20150303
  16. DICLOFENAC [Concomitant]
     Active Substance: DICLOFENAC
  17. DILAUDID [Concomitant]
     Active Substance: HYDROMORPHONE HYDROCHLORIDE
  18. ACTEMRA [Suspect]
     Active Substance: TOCILIZUMAB
     Route: 042
     Dates: start: 20150331
  19. ACTEMRA [Suspect]
     Active Substance: TOCILIZUMAB
     Route: 042
     Dates: start: 20141015
  20. METHOTREXATE [Concomitant]
     Active Substance: METHOTREXATE

REACTIONS (14)
  - Depression [Unknown]
  - Oxygen saturation decreased [Unknown]
  - Oxygen saturation decreased [Unknown]
  - Blood pressure increased [Unknown]
  - Arthralgia [Unknown]
  - Weight fluctuation [Unknown]
  - Musculoskeletal pain [Not Recovered/Not Resolved]
  - Anger [Unknown]
  - Abdominal pain [Unknown]
  - Infusion related reaction [Unknown]
  - Suicidal ideation [Unknown]
  - Faecal incontinence [Unknown]
  - Pain in extremity [Not Recovered/Not Resolved]
  - Peripheral swelling [Not Recovered/Not Resolved]

NARRATIVE: CASE EVENT DATE: 20140915
